FAERS Safety Report 4745544-8 (Version None)
Quarter: 2005Q3

REPORT INFORMATION
  Report Type: 
  Country: None (occurrence: None)
  Receive Date: 20050811
  Receipt Date: 20050516
  Transmission Date: 20060218
  Serious: Yes (Hospitalization)
  Sender: FDA-Public Use
  Company Number: US_000745489

PATIENT
  Age: 76 Year
  Sex: Female
  Weight: 73 kg

DRUGS (6)
  1. HUMULIN N [Suspect]
     Indication: DIABETES MELLITUS
     Dosage: 18 U/DAY
     Dates: start: 19850101
  2. HUMULIN R [Suspect]
     Indication: DIABETES MELLITUS
     Dosage: 5.5 U /DAY
     Dates: start: 19850101
  3. HUMALOG [Suspect]
     Indication: DIABETES MELLITUS
     Dates: start: 19960101
  4. ILETIN [Suspect]
     Indication: DIABETES MELLITUS
  5. ILETIN [Suspect]
     Indication: DIABETES MELLITUS
  6. ILETIN [Suspect]
     Indication: DIABETES MELLITUS

REACTIONS (11)
  - BLOOD GLUCOSE INCREASED [None]
  - DRUG INEFFECTIVE [None]
  - FACIAL NERVE DISORDER [None]
  - INSULIN RESISTANCE [None]
  - INTERVERTEBRAL DISC PROTRUSION [None]
  - MUSCLE SPASMS [None]
  - NERVE COMPRESSION [None]
  - NERVE INJURY [None]
  - PAIN IN EXTREMITY [None]
  - PROCEDURAL PAIN [None]
  - SPINAL DEFORMITY [None]
